FAERS Safety Report 19228996 (Version 1)
Quarter: 2021Q2

REPORT INFORMATION
  Report Type: Spontaneous
  Country: US (occurrence: US)
  Receive Date: 20210506
  Receipt Date: 20210506
  Transmission Date: 20210717
  Serious: No
  Sender: FDA-Public Use
  Company Number: US-009507513-2105USA000624

PATIENT
  Sex: Male

DRUGS (1)
  1. INTRON A [Suspect]
     Active Substance: INTERFERON ALFA-2B
     Indication: HEPATIC CANCER
     Dosage: 6 MILLION INTERNATIONAL UNIT (0.6ML), DAYS 1, 3, 5, 7, 15, 17, 19, AND 21 OF EACH 28 DAY CYCLE
     Route: 058
     Dates: start: 20200821

REACTIONS (3)
  - Pyrexia [Unknown]
  - Influenza like illness [Unknown]
  - Fatigue [Unknown]
